FAERS Safety Report 18849411 (Version 7)
Quarter: 2021Q3

REPORT INFORMATION
  Report Type: Report from Study
  Country: US (occurrence: US)
  Receive Date: 20210205
  Receipt Date: 20210716
  Transmission Date: 20211014
  Serious: Yes (Other)
  Sender: FDA-Public Use
  Company Number: NVSC2021US026496

PATIENT
  Sex: Male

DRUGS (5)
  1. BEOVU [Suspect]
     Active Substance: BROLUCIZUMAB-DBLL
     Dosage: UNK (IN RIGHT EYE)
     Route: 047
     Dates: start: 20210515
  2. BEOVU [Suspect]
     Active Substance: BROLUCIZUMAB-DBLL
     Indication: NEOVASCULAR AGE-RELATED MACULAR DEGENERATION
     Dosage: UNK (EVERY 6 WEEKS)
     Route: 047
     Dates: start: 20210514
  3. BEOVU [Suspect]
     Active Substance: BROLUCIZUMAB-DBLL
     Dosage: UNK (IN LEFT EYE, EVERY 12 WEEKS)
     Route: 047
     Dates: start: 20210628
  4. BEOVU [Suspect]
     Active Substance: BROLUCIZUMAB-DBLL
     Dosage: UNK
     Route: 065
  5. BEOVU [Suspect]
     Active Substance: BROLUCIZUMAB-DBLL
     Dosage: UNK
     Route: 065

REACTIONS (6)
  - Vitreous floaters [Unknown]
  - Nasopharyngitis [Unknown]
  - Cerebrovascular accident [Unknown]
  - Drug effect less than expected [Unknown]
  - Visual acuity reduced [Unknown]
  - Visual impairment [Unknown]
